FAERS Safety Report 7346985-5 (Version None)
Quarter: 2011Q1

REPORT INFORMATION
  Report Type: 
  Country: None (occurrence: None)
  Receive Date: 20110311
  Receipt Date: 20110303
  Transmission Date: 20110831
  Serious: No
  Sender: FDA-Public Use
  Company Number: US-US-EMD SERONO, INC.-7002397

PATIENT
  Sex: Female

DRUGS (4)
  1. TOPAMAX [Concomitant]
  2. REBIF [Suspect]
     Indication: PRODUCT USED FOR UNKNOWN INDICATION
     Route: 058
     Dates: start: 20090610, end: 20100414
  3. UNSPECIFIED MEDICATION [Concomitant]
     Indication: TYPE 2 DIABETES MELLITUS
     Route: 048
  4. GABAPENTIN [Concomitant]

REACTIONS (1)
  - NO ADVERSE EVENT [None]
